FAERS Safety Report 24671142 (Version 2)
Quarter: 2025Q3

REPORT INFORMATION
  Report Type: Report from Study
  Country: EU (occurrence: EU)
  Receive Date: 20241127
  Receipt Date: 20250730
  Transmission Date: 20251021
  Serious: Yes (Other)
  Sender: MYLAN
  Company Number: EU-SA-SAC20220318000689

PATIENT
  Age: 66 Year
  Sex: Female
  Weight: 57.5 kg

DRUGS (76)
  1. POMALIDOMIDE [Suspect]
     Active Substance: POMALIDOMIDE
     Indication: Plasma cell myeloma refractory
     Dosage: 4 MILLIGRAM, QD
     Dates: start: 20220316, end: 20220405
  2. POMALIDOMIDE [Suspect]
     Active Substance: POMALIDOMIDE
     Dosage: 4 MILLIGRAM, QD
     Dates: start: 20220413, end: 20220503
  3. POMALIDOMIDE [Suspect]
     Active Substance: POMALIDOMIDE
     Dosage: 3 MILLIGRAM, QD
     Dates: start: 20220512, end: 20220601
  4. POMALIDOMIDE [Suspect]
     Active Substance: POMALIDOMIDE
     Dosage: 3 MILLIGRAM, QD
     Dates: start: 20220610, end: 20220707
  5. POMALIDOMIDE [Suspect]
     Active Substance: POMALIDOMIDE
     Dosage: 2 MILLIGRAM, QD
     Dates: start: 20220708, end: 20220728
  6. POMALIDOMIDE [Suspect]
     Active Substance: POMALIDOMIDE
     Dosage: 2 MILLIGRAM, QD
     Dates: start: 20220805, end: 20220825
  7. POMALIDOMIDE [Suspect]
     Active Substance: POMALIDOMIDE
     Dosage: 2 MILLIGRAM, QD
     Dates: start: 20220902, end: 20220915
  8. POMALIDOMIDE [Suspect]
     Active Substance: POMALIDOMIDE
     Dosage: 2 MILLIGRAM, QD
     Dates: start: 20220921, end: 20220927
  9. POMALIDOMIDE [Suspect]
     Active Substance: POMALIDOMIDE
     Dosage: 2 MILLIGRAM, QD
     Dates: start: 20221005, end: 20221025
  10. POMALIDOMIDE [Suspect]
     Active Substance: POMALIDOMIDE
     Dosage: 2 MILLIGRAM, QD
     Dates: start: 20221109, end: 20221129
  11. POMALIDOMIDE [Suspect]
     Active Substance: POMALIDOMIDE
     Dosage: 2 MILLIGRAM, QD
     Dates: start: 20221207, end: 20221227
  12. POMALIDOMIDE [Suspect]
     Active Substance: POMALIDOMIDE
     Dosage: 2 MILLIGRAM, QD
     Dates: start: 20230104, end: 20230124
  13. POMALIDOMIDE [Suspect]
     Active Substance: POMALIDOMIDE
     Dosage: 2 MILLIGRAM, QD
     Dates: start: 20230201, end: 20230221
  14. POMALIDOMIDE [Suspect]
     Active Substance: POMALIDOMIDE
     Dosage: 2 MILLIGRAM, QD
     Dates: start: 20230405, end: 20230425
  15. POMALIDOMIDE [Suspect]
     Active Substance: POMALIDOMIDE
     Dosage: 2 MILLIGRAM, QD
     Dates: start: 20230726, end: 20230826
  16. POMALIDOMIDE [Suspect]
     Active Substance: POMALIDOMIDE
     Dosage: 2 MILLIGRAM, QD
     Dates: start: 20230301, end: 20230322
  17. POMALIDOMIDE [Suspect]
     Active Substance: POMALIDOMIDE
     Dosage: 2 MILLIGRAM, QD
     Dates: start: 20230927, end: 20231018
  18. POMALIDOMIDE [Suspect]
     Active Substance: POMALIDOMIDE
     Dosage: 2 MILLIGRAM, QD
     Dates: start: 20231031, end: 20231121
  19. POMALIDOMIDE [Suspect]
     Active Substance: POMALIDOMIDE
     Dosage: 2 MILLIGRAM, QD
     Dates: start: 20231129, end: 20231220
  20. POMALIDOMIDE [Suspect]
     Active Substance: POMALIDOMIDE
     Dosage: 2 MILLIGRAM, QD
     Dates: start: 20231227, end: 20240117
  21. POMALIDOMIDE [Suspect]
     Active Substance: POMALIDOMIDE
     Dosage: 2 MILLIGRAM, QD
     Dates: start: 20240124, end: 20240214
  22. POMALIDOMIDE [Suspect]
     Active Substance: POMALIDOMIDE
     Dosage: 2 MILLIGRAM, QD
     Dates: start: 20240220, end: 20240312
  23. POMALIDOMIDE [Suspect]
     Active Substance: POMALIDOMIDE
     Dosage: 2 MILLIGRAM, QD
     Dates: start: 20240320, end: 20240410
  24. DEXAMETHASONE [Suspect]
     Active Substance: DEXAMETHASONE
     Indication: Plasma cell myeloma refractory
     Dosage: 40 MILLIGRAM, QW
     Dates: start: 20220316, end: 20220407
  25. DEXAMETHASONE [Suspect]
     Active Substance: DEXAMETHASONE
     Dosage: 6 MILLIGRAM, QW
     Dates: start: 20220408, end: 20220412
  26. DEXAMETHASONE [Suspect]
     Active Substance: DEXAMETHASONE
     Dosage: 40 MILLIGRAM, QW (20 MG, BIW)
     Dates: start: 20220413, end: 20220427
  27. DEXAMETHASONE [Suspect]
     Active Substance: DEXAMETHASONE
     Dosage: 80 MILLIGRAM, QW (40 MG, BIW)
     Dates: start: 20220428, end: 20220511
  28. DEXAMETHASONE [Suspect]
     Active Substance: DEXAMETHASONE
     Dosage: 40 MILLIGRAM, QW (20 MG, BIW)
     Dates: start: 20220512, end: 20220609
  29. DEXAMETHASONE [Suspect]
     Active Substance: DEXAMETHASONE
     Dosage: 40 MILLIGRAM, QW (20 MG, BIW)
     Dates: start: 20220610, end: 20220707
  30. DEXAMETHASONE [Suspect]
     Active Substance: DEXAMETHASONE
     Dosage: 40 MILLIGRAM, QW (20 MG, BIW)
     Dates: start: 20220708, end: 20220728
  31. DEXAMETHASONE [Suspect]
     Active Substance: DEXAMETHASONE
     Dosage: 40 MILLIGRAM, QW (20 MG, BIW)
     Dates: start: 20220805, end: 20220901
  32. DEXAMETHASONE [Suspect]
     Active Substance: DEXAMETHASONE
     Dosage: 40 MILLIGRAM, QW (20 MG, BIW)
     Dates: start: 20220902, end: 20220915
  33. DEXAMETHASONE [Suspect]
     Active Substance: DEXAMETHASONE
     Dosage: 40 MILLIGRAM, QW (20 MG, BIW)
     Dates: start: 20220921, end: 20221004
  34. DEXAMETHASONE [Suspect]
     Active Substance: DEXAMETHASONE
     Dosage: 40 MILLIGRAM, QW (20 MG, BIW)
     Dates: start: 20221005, end: 20221101
  35. DEXAMETHASONE [Suspect]
     Active Substance: DEXAMETHASONE
     Dosage: 40 MILLIGRAM, QW (20 MG, BIW)
     Dates: start: 20221109, end: 20221206
  36. DEXAMETHASONE [Suspect]
     Active Substance: DEXAMETHASONE
     Dosage: 40 MILLIGRAM, QW (20 MG, BIW)
     Dates: start: 20221207, end: 20230103
  37. DEXAMETHASONE [Suspect]
     Active Substance: DEXAMETHASONE
     Dosage: 40 MILLIGRAM, QW (20 MG, BIW)
     Dates: start: 20230201, end: 20230228
  38. DEXAMETHASONE [Suspect]
     Active Substance: DEXAMETHASONE
     Dosage: 40 MILLIGRAM, QW (20 MG, BIW)
     Dates: start: 20230301, end: 20230314
  39. DEXAMETHASONE [Suspect]
     Active Substance: DEXAMETHASONE
     Dosage: 20 MILLIGRAM, QW (10 MG, BIW)
     Dates: start: 20230315, end: 20230328
  40. DEXAMETHASONE [Suspect]
     Active Substance: DEXAMETHASONE
     Dosage: 40 MILLIGRAM, QW (20 MG, BIW)
     Dates: start: 20230405, end: 20230502
  41. DEXAMETHASONE [Suspect]
     Active Substance: DEXAMETHASONE
     Dosage: 40 MILLIGRAM, QW (20 MG, BIW)
     Dates: start: 20230104, end: 20230131
  42. ISATUXIMAB [Suspect]
     Active Substance: ISATUXIMAB
     Indication: Plasma cell myeloma refractory
     Dosage: 10 MILLIGRAM/KILOGRAM, QW
     Dates: start: 20220316, end: 20220412
  43. ISATUXIMAB [Suspect]
     Active Substance: ISATUXIMAB
     Dosage: 20 MILLIGRAM/KILOGRAM, QW (10 MG/KG, BIW)
     Dates: start: 20220413, end: 20220511
  44. ISATUXIMAB [Suspect]
     Active Substance: ISATUXIMAB
     Dosage: 20 MILLIGRAM/KILOGRAM, QW (10 MG/KG, BIW)
     Dates: start: 20220512, end: 20220609
  45. ISATUXIMAB [Suspect]
     Active Substance: ISATUXIMAB
     Dosage: 20 MILLIGRAM/KILOGRAM, QW (10 MG/KG, BIW)
     Dates: start: 20220610, end: 20220707
  46. ISATUXIMAB [Suspect]
     Active Substance: ISATUXIMAB
     Dosage: 20 MILLIGRAM/KILOGRAM, QW (10 MG/KG, BIW)
     Dates: start: 20220708, end: 20220804
  47. ISATUXIMAB [Suspect]
     Active Substance: ISATUXIMAB
     Dosage: 20 MILLIGRAM/KILOGRAM, QW (10 MG/KG, BIW)
     Dates: start: 20220805, end: 20220901
  48. ISATUXIMAB [Suspect]
     Active Substance: ISATUXIMAB
     Dosage: 20 MILLIGRAM/KILOGRAM, QW (10 MG/KG, BIW)
     Dates: start: 20220902, end: 20220915
  49. ISATUXIMAB [Suspect]
     Active Substance: ISATUXIMAB
     Dosage: 20 MILLIGRAM/KILOGRAM, QW (10 MG/KG, BIW)
     Dates: start: 20220916, end: 20220920
  50. ISATUXIMAB [Suspect]
     Active Substance: ISATUXIMAB
     Dosage: 20 MILLIGRAM/KILOGRAM, QW (10 MG/KG, BIW)
     Dates: start: 20220921, end: 20221004
  51. ISATUXIMAB [Suspect]
     Active Substance: ISATUXIMAB
     Dosage: 20 MILLIGRAM/KILOGRAM, QW (10 MG/KG, BIW)
     Dates: start: 20221005, end: 20221101
  52. ISATUXIMAB [Suspect]
     Active Substance: ISATUXIMAB
     Dosage: 20 MILLIGRAM/KILOGRAM, QW (10 MG/KG, BIW)
     Dates: start: 20221109, end: 20221206
  53. ISATUXIMAB [Suspect]
     Active Substance: ISATUXIMAB
     Dosage: 20 MILLIGRAM/KILOGRAM, QW (10 MG/KG, BIW)
     Dates: start: 20221207, end: 20230103
  54. ISATUXIMAB [Suspect]
     Active Substance: ISATUXIMAB
     Dosage: 20 MILLIGRAM/KILOGRAM, QW (10 MG/KG, BIW)
     Dates: start: 20230104, end: 20230131
  55. ISATUXIMAB [Suspect]
     Active Substance: ISATUXIMAB
     Dosage: 20 MILLIGRAM/KILOGRAM, QW (10 MG/KG, BIW)
     Dates: start: 20230201, end: 20230228
  56. ISATUXIMAB [Suspect]
     Active Substance: ISATUXIMAB
     Dosage: 20 MILLIGRAM/KILOGRAM, QW (10 MG/KG, BIW)
     Dates: start: 20230301, end: 20230328
  57. ISATUXIMAB [Suspect]
     Active Substance: ISATUXIMAB
     Dosage: 20 MILLIGRAM/KILOGRAM, QW (10 MG/KG, BIW)
     Dates: start: 20230405, end: 20230502
  58. ISATUXIMAB [Suspect]
     Active Substance: ISATUXIMAB
     Dosage: 20 MILLIGRAM/KILOGRAM, QW (10 MG/KG, BIW)
     Dates: start: 20230405, end: 20230502
  59. ISATUXIMAB [Suspect]
     Active Substance: ISATUXIMAB
     Dosage: 20 MILLIGRAM/KILOGRAM, QW (10 MG/KG, BIW)
     Dates: start: 20230927, end: 20231024
  60. ISATUXIMAB [Suspect]
     Active Substance: ISATUXIMAB
     Dosage: 20 MILLIGRAM/KILOGRAM, QW (10 MG/KG, BIW)
     Dates: start: 20231031, end: 20231128
  61. ISATUXIMAB [Suspect]
     Active Substance: ISATUXIMAB
     Dosage: 20 MILLIGRAM/KILOGRAM, QW (10 MG/KG, BIW)
     Dates: start: 20231129, end: 20231226
  62. ISATUXIMAB [Suspect]
     Active Substance: ISATUXIMAB
     Dosage: 20 MILLIGRAM/KILOGRAM, QW (10 MG/KG, BIW)
     Dates: start: 20231227, end: 20240123
  63. ISATUXIMAB [Suspect]
     Active Substance: ISATUXIMAB
     Dosage: 20 MILLIGRAM/KILOGRAM, QW (10 MG/KG, BIW)
     Dates: start: 20240124, end: 20240219
  64. ISATUXIMAB [Suspect]
     Active Substance: ISATUXIMAB
     Dosage: 20 MILLIGRAM/KILOGRAM, QW (10 MG/KG, BIW)
     Dates: start: 20240220, end: 20240319
  65. ISATUXIMAB [Suspect]
     Active Substance: ISATUXIMAB
     Dosage: 20 MILLIGRAM/KILOGRAM, QW (10 MG/KG, BIW)
     Dates: start: 20240320, end: 20240416
  66. ISATUXIMAB [Suspect]
     Active Substance: ISATUXIMAB
     Dosage: 20 MILLIGRAM/KILOGRAM, QW (10 MG/KG, BIW)
     Dates: start: 20240417, end: 20240515
  67. LOVENOX [Concomitant]
     Active Substance: ENOXAPARIN SODIUM
     Indication: Thrombosis prophylaxis
     Dates: start: 20190902, end: 20220412
  68. VALACYCLOVIR HYDROCHLORIDE [Concomitant]
     Active Substance: VALACYCLOVIR HYDROCHLORIDE
     Indication: Antiviral prophylaxis
  69. COVID-19 vaccine [Concomitant]
     Indication: Immunisation
  70. COVID-19 vaccine [Concomitant]
     Dates: start: 20220413, end: 20220413
  71. ELIQUIS [Concomitant]
     Active Substance: APIXABAN
     Indication: Thrombosis prophylaxis
  72. PANTOPRAZOLE [Concomitant]
     Active Substance: PANTOPRAZOLE
     Indication: Prophylaxis
     Dates: start: 20230316, end: 20230427
  73. DEXCHLORPHENIRAMINE [Concomitant]
     Active Substance: DEXCHLORPHENIRAMINE
     Indication: Prophylaxis
     Dates: start: 20230316, end: 20230427
  74. AMOXICILLIN [Concomitant]
     Active Substance: AMOXICILLIN
     Dates: start: 20230326, end: 20230404
  75. INFLUENZA VIRUS VACCINE [Concomitant]
     Active Substance: INFLUENZA VIRUS VACCINE
  76. ACETAMINOPHEN [Concomitant]
     Active Substance: ACETAMINOPHEN
     Indication: Hyperthermia
     Dates: start: 20230316, end: 20230427

REACTIONS (4)
  - Neutropenia [Recovered/Resolved]
  - Infusion related reaction [Recovered/Resolved]
  - Abdominal pain upper [Recovered/Resolved]
  - Tooth infection [Recovered/Resolved]

NARRATIVE: CASE EVENT DATE: 20220316
